FAERS Safety Report 9825697 (Version 1)
Quarter: 2014Q1

REPORT INFORMATION
  Report Type: Spontaneous
  Country: US (occurrence: None)
  Receive Date: 20140115
  Receipt Date: 20140115
  Transmission Date: 20141002
  Serious: Yes (Other)
  Sender: FDA-Public Use
  Company Number: None

PATIENT
  Age: 67 Year
  Sex: Female
  Weight: 74.84 kg

DRUGS (1)
  1. LEFLUNOMIDE [Suspect]
     Indication: ARTHRITIS
     Dosage: JULY 14- OC514

REACTIONS (4)
  - Alopecia [None]
  - Dizziness [None]
  - Balance disorder [None]
  - Heart rate increased [None]
